FAERS Safety Report 8610644-9 (Version None)
Quarter: 2012Q3

REPORT INFORMATION
  Report Type: 
  Country: None (occurrence: None)
  Receive Date: 20120822
  Receipt Date: 20120816
  Transmission Date: 20120928
  Serious: Yes (Other)
  Sender: FDA-Public Use
  Company Number: US-JNJFOC-20120704636

PATIENT
  Sex: Female

DRUGS (6)
  1. DOXORUBICIN HYDROCHLORIDE [Suspect]
     Dosage: CYCLE 2
     Route: 042
  2. DOXORUBICIN HYDROCHLORIDE [Suspect]
     Dosage: CYCLE 5
     Route: 042
     Dates: start: 20120815
  3. DOXORUBICIN HYDROCHLORIDE [Suspect]
     Dosage: CYCLE 4
     Route: 042
  4. DOXORUBICIN HYDROCHLORIDE [Suspect]
     Dosage: EVERY 4 WEEKS, CYCLE 1
     Route: 042
     Dates: start: 20120411
  5. DOXORUBICIN HYDROCHLORIDE [Suspect]
     Indication: OVARIAN CANCER
     Dosage: CYCLE 3
     Route: 042
  6. AVASTIN [Suspect]
     Indication: PRODUCT USED FOR UNKNOWN INDICATION
     Route: 042

REACTIONS (4)
  - NEUROPATHY PERIPHERAL [None]
  - PRODUCT QUALITY ISSUE [None]
  - PLATELET COUNT DECREASED [None]
  - TUMOUR MARKER INCREASED [None]
